FAERS Safety Report 10348355 (Version 5)
Quarter: 2015Q2

REPORT INFORMATION
  Report Type: Report from Study
  Country: US (occurrence: US)
  Receive Date: 20140729
  Receipt Date: 20150514
  Transmission Date: 20150821
  Serious: Yes (Hospitalization, Other)
  Sender: FDA-Public Use
  Company Number: US-ACTELION-A-US2014-100878

PATIENT
  Age: 54 Year
  Sex: Female

DRUGS (5)
  1. ADCIRCA [Concomitant]
     Active Substance: TADALAFIL
  2. TRACLEER [Suspect]
     Active Substance: BOSENTAN\BOSENTAN MONOHYDRATE
     Indication: PULMONARY HYPERTENSION
     Dosage: UNK
     Route: 048
  3. TYVASO [Suspect]
     Active Substance: TREPROSTINIL
     Indication: PRODUCT USED FOR UNKNOWN INDICATION
     Route: 065
  4. REMODULIN [Concomitant]
     Active Substance: TREPROSTINIL
     Route: 058
  5. SILDENAFIL. [Concomitant]
     Active Substance: SILDENAFIL

REACTIONS (12)
  - Condition aggravated [Unknown]
  - Right ventricular dysfunction [Unknown]
  - Dizziness exertional [Unknown]
  - Catheter site pain [Unknown]
  - Pulmonary arterial hypertension [Unknown]
  - Decreased activity [Unknown]
  - Catheter site swelling [Unknown]
  - Interstitial lung disease [Unknown]
  - Nasopharyngitis [Unknown]
  - Systemic sclerosis [Unknown]
  - No therapeutic response [Unknown]
  - Dyspnoea exertional [Unknown]
